FAERS Safety Report 7618827-1 (Version None)
Quarter: 2011Q3

REPORT INFORMATION
  Report Type: 
  Country: None (occurrence: None)
  Receive Date: 20110718
  Receipt Date: 20110714
  Transmission Date: 20111222
  Serious: Yes (Other)
  Sender: FDA-Public Use
  Company Number: US-PFIZER INC-2011159756

PATIENT
  Age: 61 Year
  Sex: Male

DRUGS (4)
  1. SPIRONOLACTONE [Suspect]
     Dosage: UNK
     Dates: start: 20110101
  2. ZYRTEC [Concomitant]
     Dosage: UNK
  3. ALLEGRA [Suspect]
     Indication: HYPERSENSITIVITY
     Dosage: 180 MG, 1X/DAY
     Route: 048
     Dates: start: 20110101
  4. DIPHENHYDRAMINE HYDROCHLORIDE [Concomitant]
     Dosage: UNK

REACTIONS (1)
  - BLOOD GLUCOSE INCREASED [None]
